FAERS Safety Report 7919525-7 (Version None)
Quarter: 2011Q4

REPORT INFORMATION
  Report Type: 
  Country: None (occurrence: None)
  Receive Date: 20111115
  Receipt Date: 20111031
  Transmission Date: 20120403
  Serious: Yes (Other)
  Sender: FDA-Public Use
  Company Number: 1000023855

PATIENT
  Age: 43 Year
  Sex: Male
  Weight: 79.38 kg

DRUGS (4)
  1. VIIBRYD [Suspect]
     Indication: DEPRESSION
     Dosage: 10 MG ( 10 MG, 1 IN1 D) ORAL
     Dates: start: 20110822, end: 20110828
  2. MVI (MVI)(MVI) [Concomitant]
  3. VIIBRYD [Suspect]
     Indication: DEPRESSION
     Dosage: 40 MG ( 40 MG, 1  IN 1 D) ORAL
     Dates: start: 20110905, end: 20110908
  4. VITAMIN D (VITAMIN D)(VITAMIN D) [Concomitant]

REACTIONS (7)
  - HYPERSENSITIVITY [None]
  - HALLUCINATION [None]
  - MEMORY IMPAIRMENT [None]
  - THIRST [None]
  - SUICIDAL IDEATION [None]
  - VISION BLURRED [None]
  - ANXIETY [None]
